FAERS Safety Report 24581335 (Version 1)
Quarter: 2024Q4

REPORT INFORMATION
  Report Type: Spontaneous
  Country: RO (occurrence: RO)
  Receive Date: 20241105
  Receipt Date: 20241105
  Transmission Date: 20250115
  Serious: Yes (Other)
  Sender: ELI LILLY AND COMPANY
  Company Number: RO-ZENTIVA-2024-ZT-013000

PATIENT
  Sex: Female

DRUGS (1)
  1. DULOXETINE HYDROCHLORIDE [Suspect]
     Active Substance: DULOXETINE HYDROCHLORIDE
     Indication: Depression
     Dosage: UNK UNK, UNKNOWN
     Route: 065

REACTIONS (15)
  - Hypnagogic hallucination [Unknown]
  - Suicidal ideation [Unknown]
  - Insomnia [Unknown]
  - Headache [Unknown]
  - Abdominal pain upper [Unknown]
  - Vomiting [Unknown]
  - Dyspepsia [Unknown]
  - Hyperhidrosis [Unknown]
  - Rash [Unknown]
  - Pruritus [Unknown]
  - Dysuria [Unknown]
  - Pollakiuria [Unknown]
  - Diarrhoea [Unknown]
  - Constipation [Unknown]
  - Fall [Unknown]
